FAERS Safety Report 7247088-0 (Version None)
Quarter: 2011Q1

REPORT INFORMATION
  Report Type: 
  Country: None (occurrence: None)
  Receive Date: 20110127
  Receipt Date: 20100115
  Transmission Date: 20110831
  Serious: No
  Sender: FDA-Public Use
  Company Number: US-BAUSCH-2010BL000344

PATIENT
  Age: 58 Year
  Sex: Male

DRUGS (2)
  1. DOXAZOSIN [Concomitant]
     Indication: PROSTATIC DISORDER
     Route: 048
  2. ALAWAY [Suspect]
     Indication: EYE PRURITUS
     Route: 047
     Dates: start: 20100115, end: 20100115

REACTIONS (6)
  - EYE SWELLING [None]
  - EXPIRED DRUG ADMINISTERED [None]
  - EYE IRRITATION [None]
  - FOREIGN BODY SENSATION IN EYES [None]
  - PHOTOPHOBIA [None]
  - LACRIMATION INCREASED [None]
